FAERS Safety Report 5657454-2 (Version None)
Quarter: 2008Q1

REPORT INFORMATION
  Report Type: 
  Country: None (occurrence: None)
  Receive Date: 20080310
  Receipt Date: 20080227
  Transmission Date: 20080703
  Serious: Yes (Hospitalization)
  Sender: FDA-Public Use
  Company Number: CH-ELI_LILLY_AND_COMPANY-CH200802006516

PATIENT
  Age: 94 Year
  Sex: Female

DRUGS (2)
  1. CYMBALTA [Suspect]
     Indication: DEPRESSION
     Dosage: 60 MG, DAILY (1/D)
     Route: 048
  2. MEMANTINE HCL [Concomitant]
     Indication: DEMENTIA
     Dosage: 10 MG, DAILY (1/D)
     Route: 048

REACTIONS (1)
  - DELIRIUM [None]
